FAERS Safety Report 8959455 (Version 1)
Quarter: 2012Q4

REPORT INFORMATION
  Report Type: 
  Country: SE (occurrence: SE)
  Receive Date: 20121212
  Receipt Date: 20121212
  Transmission Date: 20130627
  Serious: Yes (Death, Hospitalization)
  Sender: FDA-Public Use
  Company Number: SE-ROCHE-1167392

PATIENT
  Age: 71 Year
  Sex: Female

DRUGS (7)
  1. ACTILYSE [Suspect]
     Indication: PRODUCT USED FOR UNKNOWN INDICATION
     Route: 065
     Dates: start: 20120925, end: 20120925
  2. BISOPROLOL [Concomitant]
  3. RAMIPRIL [Concomitant]
  4. SIMVASTATIN [Concomitant]
  5. DIGOXIN [Concomitant]
     Route: 065
  6. TROMBYL [Concomitant]
     Route: 065
  7. FURIX RETARD [Concomitant]
     Route: 065

REACTIONS (2)
  - Death [Fatal]
  - Tongue oedema [Unknown]
